FAERS Safety Report 8597143-8 (Version None)
Quarter: 2012Q3

REPORT INFORMATION
  Report Type: 
  Country: None (occurrence: None)
  Receive Date: 20120816
  Receipt Date: 20120807
  Transmission Date: 20120928
  Serious: No
  Sender: FDA-Public Use
  Company Number: US-BIOGENIDEC-2012BI030257

PATIENT
  Sex: Female

DRUGS (3)
  1. TYSABRI [Suspect]
     Indication: MULTIPLE SCLEROSIS
     Route: 042
     Dates: start: 20081204, end: 20090827
  2. TYSABRI [Suspect]
     Route: 042
     Dates: start: 20120125
  3. TYSABRI [Suspect]
     Route: 042
     Dates: end: 20120613

REACTIONS (1)
  - HEADACHE [None]
